FAERS Safety Report 5022190-2 (Version None)
Quarter: 2006Q2

REPORT INFORMATION
  Report Type: 
  Country: None (occurrence: None)
  Receive Date: 20060605
  Receipt Date: 20060523
  Transmission Date: 20061013
  Serious: Yes (Other)
  Sender: FDA-Public Use
  Company Number: 2006067232

PATIENT
  Age: 14 Year
  Sex: Female
  Weight: 25 kg

DRUGS (1)
  1. CLINDAMYCIN HCL [Suspect]
     Indication: ILL-DEFINED DISORDER
     Dosage: 300 MG, ORAL
     Route: 048
     Dates: start: 20060523

REACTIONS (1)
  - FOREIGN BODY ASPIRATION [None]
